FAERS Safety Report 18335603 (Version 10)
Quarter: 2021Q3

REPORT INFORMATION
  Report Type: Spontaneous
  Country: US (occurrence: US)
  Receive Date: 20201001
  Receipt Date: 20210909
  Transmission Date: 20211014
  Serious: No
  Sender: FDA-Public Use
  Company Number: US-BLUEPRINT MEDICINES CORPORATION-SP-US-2020-001058

PATIENT
  Age: 68 Year
  Sex: Female

DRUGS (5)
  1. AYVAKIT [Suspect]
     Active Substance: AVAPRITINIB
     Dosage: 3 WEEKS ON AND 1 WEEK OFF
     Route: 048
     Dates: start: 20181201
  2. AYVAKIT [Suspect]
     Active Substance: AVAPRITINIB
     Dosage: TAKE 3 TABLETS BY MOUTH DAILY ON AN EMPTY STOMACH. TAKE FOR 3 WEEKS ON AND 1 WEEK OFF
     Route: 048
     Dates: start: 20200909
  3. AYVAKIT [Suspect]
     Active Substance: AVAPRITINIB
     Dosage: 3 WEEKS ON AND 1 WEEK OFF
     Route: 048
     Dates: start: 20181203
  4. AYVAKIT [Suspect]
     Active Substance: AVAPRITINIB
     Indication: GASTROINTESTINAL STROMAL TUMOUR
     Dosage: TAKE 3 TABLETS BY MOUTH DAILY ON AN EMPTY STOMACH. TAKE FOR 3 WEEKS ON AND 1 WEEK OFF
     Route: 048
     Dates: start: 20200909
  5. AYVAKIT [Suspect]
     Active Substance: AVAPRITINIB
     Route: 048
     Dates: start: 20181201

REACTIONS (22)
  - Feeling abnormal [Not Recovered/Not Resolved]
  - Inappropriate schedule of product administration [Not Recovered/Not Resolved]
  - Insomnia [Not Recovered/Not Resolved]
  - Amnesia [Not Recovered/Not Resolved]
  - Prescribed overdose [Recovered/Resolved]
  - Diarrhoea [Not Recovered/Not Resolved]
  - Memory impairment [Not Recovered/Not Resolved]
  - Cognitive disorder [Not Recovered/Not Resolved]
  - Aphasia [Not Recovered/Not Resolved]
  - Vertigo [Not Recovered/Not Resolved]
  - Pain in extremity [Recovered/Resolved]
  - Ligament sprain [Not Recovered/Not Resolved]
  - Fatigue [Not Recovered/Not Resolved]
  - Ligament pain [Not Recovered/Not Resolved]
  - Nausea [Not Recovered/Not Resolved]
  - Intentional dose omission [Recovered/Resolved]
  - Rectal tenesmus [Not Recovered/Not Resolved]
  - Neoplasm progression [Not Recovered/Not Resolved]
  - Drug ineffective [Not Recovered/Not Resolved]
  - Fall [Recovered/Resolved]
  - Abdominal pain upper [Not Recovered/Not Resolved]
  - Balance disorder [Not Recovered/Not Resolved]

NARRATIVE: CASE EVENT DATE: 20181201
